FAERS Safety Report 8732657 (Version 4)
Quarter: 2012Q4

REPORT INFORMATION
  Report Type: Spontaneous
  Country: DK (occurrence: None)
  Receive Date: 20120801
  Receipt Date: 20120830
  Transmission Date: 20130627
  Serious: Yes (Hospitalization, Other)
  Sender: FDA-Public Use
  Company Number: 2012MA009038

PATIENT
  Age: 40 Year
  Sex: Male
  Weight: 92.5 kg

DRUGS (4)
  1. IBUPROFEN [Suspect]
     Indication: GASTRIC DISORDER
     Dosage: 200 MG; BID;
     Dates: start: 20120609, end: 20120609
  2. ALKA SELTZER XS [Suspect]
     Indication: STOMACH UPSET
     Dosage: 2 DF;X1;
     Dates: start: 20120609, end: 20120609
  3. OMEPRAZOLE [Concomitant]
  4. SUPERDRUG EFFERVESCENT HEALTH SALTS (NO PREF. NAME) [Suspect]
     Dosage: 1 TSP
     Dates: start: 20120609, end: 20120609

REACTIONS (11)
  - Quadriplegia [None]
  - Dizziness [None]
  - Malaise [None]
  - Abdominal pain upper [None]
  - Asthenia [None]
  - Motion sickness [None]
  - VIIth nerve paralysis [None]
  - Paraesthesia [None]
  - Hypoaesthesia [None]
  - Dizziness [None]
  - Mobility decreased [None]
